FAERS Safety Report 5201100-9 (Version None)
Quarter: 2007Q1

REPORT INFORMATION
  Report Type: 
  Country: None (occurrence: None)
  Receive Date: 20070103
  Receipt Date: 20061219
  Transmission Date: 20070707
  Serious: Yes (Hospitalization)
  Sender: FDA-Public Use
  Company Number: 2006-02095

PATIENT
  Age: 38 Year
  Sex: Male
  Weight: 121.5 kg

DRUGS (3)
  1. VELCADE [Suspect]
     Indication: MULTIPLE MYELOMA
     Dosage: 1.30 MG/M2, INTRAVENOUS
     Route: 042
     Dates: start: 20060126, end: 20061011
  2. CYCLOPHOSPHAMIDE [Suspect]
     Indication: MULTIPLE MYELOMA
     Dosage: 300.00 MG/M2, ORAL
     Route: 048
     Dates: start: 20060126, end: 20061011
  3. PREDNISONE [Suspect]
     Indication: MULTIPLE MYELOMA
     Dosage: 100.00 MG, ORAL
     Route: 048
     Dates: start: 20060126, end: 20061011

REACTIONS (7)
  - BLOOD PRESSURE INCREASED [None]
  - DISEASE PROGRESSION [None]
  - ELECTROCARDIOGRAM T WAVE BIPHASIC [None]
  - PNEUMONIA [None]
  - PULMONARY EMBOLISM [None]
  - SEPSIS [None]
  - SINUS TACHYCARDIA [None]
